FAERS Safety Report 24355381 (Version 2)
Quarter: 2024Q4

REPORT INFORMATION
  Report Type: Spontaneous
  Country: PL (occurrence: PL)
  Receive Date: 20240924
  Receipt Date: 20241007
  Transmission Date: 20250115
  Serious: Yes (Death)
  Sender: AMGEN
  Company Number: PL-AMGEN-POLSP2024188789

PATIENT
  Age: 50 Year
  Sex: Male

DRUGS (1)
  1. SOTORASIB [Suspect]
     Active Substance: SOTORASIB
     Indication: Product used for unknown indication
     Dosage: UNK
     Route: 065
     Dates: start: 202405

REACTIONS (1)
  - Death [Fatal]

NARRATIVE: CASE EVENT DATE: 20240101
